FAERS Safety Report 6031177-2 (Version None)
Quarter: 2009Q1

REPORT INFORMATION
  Report Type: 
  Country: None (occurrence: None)
  Receive Date: 20090108
  Receipt Date: 20081204
  Transmission Date: 20090719
  Serious: Yes (Death, Life-Threatening, Hospitalization)
  Sender: FDA-Public Use
  Company Number: FR-CELGENEUS-056-20484-08110874

PATIENT
  Sex: Female

DRUGS (1)
  1. INNOHEP [Suspect]
     Indication: PROPHYLAXIS
     Route: 058
     Dates: start: 20080825, end: 20080920

REACTIONS (3)
  - MELAENA [None]
  - THROMBOCYTOPENIA [None]
  - UROSEPSIS [None]
